FAERS Safety Report 9657320 (Version 1)
Quarter: 2013Q4

REPORT INFORMATION
  Report Type: Spontaneous
  Country: US (occurrence: US)
  Receive Date: 20131030
  Receipt Date: 20131030
  Transmission Date: 20140711
  Serious: Yes (Other)
  Sender: FDA-Public Use
  Company Number: US-GLAXOSMITHKLINE-A1047153A

PATIENT
  Age: 28 Year
  Sex: Female

DRUGS (6)
  1. WELLBUTRIN SR [Suspect]
     Indication: DEPRESSION
     Dosage: 200MG TWICE PER DAY
     Route: 048
     Dates: start: 2013
  2. WELLBUTRIN XL [Suspect]
     Indication: DEPRESSION
     Route: 065
  3. BUPROPION [Suspect]
     Indication: DEPRESSION
     Route: 065
  4. KLONOPIN [Concomitant]
  5. SYNTHROID [Concomitant]
     Dosage: 150MCG PER DAY
  6. TOPAMAX [Concomitant]

REACTIONS (3)
  - Suicidal ideation [Not Recovered/Not Resolved]
  - Depression suicidal [Unknown]
  - Drug ineffective [Unknown]
